FAERS Safety Report 16674327 (Version 1)
Quarter: 2019Q3

REPORT INFORMATION
  Report Type: Spontaneous
  Country: CN (occurrence: CN)
  Receive Date: 20190806
  Receipt Date: 20190806
  Transmission Date: 20191004
  Serious: Yes (Hospitalization)
  Sender: FDA-Public Use
  Company Number: PHHY2019CN181136

PATIENT
  Age: 68 Year
  Sex: Female

DRUGS (3)
  1. AMANTADINE HYDROCHLORIDE. [Concomitant]
     Active Substance: AMANTADINE HYDROCHLORIDE
     Indication: PARKINSON^S DISEASE
     Dosage: 0.100000 G, BID
     Route: 048
     Dates: start: 20190717, end: 20190724
  2. ACLASTA [Suspect]
     Active Substance: ZOLEDRONIC ACID
     Indication: OSTEOPOROSIS
     Dosage: 5 MG, Q12MO (AFTERNOON)
     Route: 041
     Dates: start: 20190720, end: 20190720
  3. MEDOBA [Concomitant]
     Indication: PARKINSON^S DISEASE
     Dosage: 0.125000 G, BID
     Route: 048
     Dates: start: 20190717, end: 20190724

REACTIONS (1)
  - Urinary retention [Unknown]

NARRATIVE: CASE EVENT DATE: 20190720
